FAERS Safety Report 4319101-1 (Version None)
Quarter: 2004Q1

REPORT INFORMATION
  Report Type: 
  Country: None (occurrence: None)
  Receive Date: 20040318
  Receipt Date: 20040318
  Transmission Date: 20041129
  Serious: Yes (Other)
  Sender: FDA-Public Use
  Company Number: None

PATIENT
  Age: 58 Year
  Sex: Female
  Weight: 90.7194 kg

DRUGS (1)
  1. PRAVACHOL [Suspect]
     Indication: HYPERCHOLESTEROLAEMIA
     Dates: start: 20040115, end: 20040204

REACTIONS (3)
  - ABNORMAL BEHAVIOUR [None]
  - DISTURBANCE IN ATTENTION [None]
  - IRRITABILITY [None]
